FAERS Safety Report 15467941 (Version 2)
Quarter: 2019Q3

REPORT INFORMATION
  Report Type: Spontaneous
  Country: US (occurrence: US)
  Receive Date: 20181005
  Receipt Date: 20190809
  Transmission Date: 20191004
  Serious: No
  Sender: FDA-Public Use
  Company Number: US-SA-2018SA272976

PATIENT
  Age: 51 Year
  Sex: Male

DRUGS (9)
  1. ZYPREXA [Concomitant]
     Active Substance: OLANZAPINE
  2. DUPIXENT [Suspect]
     Active Substance: DUPILUMAB
     Indication: DERMATITIS ATOPIC
     Dosage: 300 MG, QOW
     Route: 058
     Dates: start: 20170901
  3. FISH OIL [Concomitant]
     Active Substance: FISH OIL
  4. OLANZAPINE. [Concomitant]
     Active Substance: OLANZAPINE
  5. DEPAKOTE ER [Concomitant]
     Active Substance: DIVALPROEX SODIUM
  6. MAGNESIUM [Concomitant]
     Active Substance: MAGNESIUM
  7. TRAZODONE [Concomitant]
     Active Substance: TRAZODONE HYDROCHLORIDE
  8. TAMSULOSINE HCL [Concomitant]
     Active Substance: TAMSULOSIN HYDROCHLORIDE
  9. LAMOTRIGINE. [Concomitant]
     Active Substance: LAMOTRIGINE

REACTIONS (4)
  - Rash pruritic [Unknown]
  - Dry skin [Unknown]
  - Localised infection [Unknown]
  - Rash erythematous [Unknown]

NARRATIVE: CASE EVENT DATE: 20190722
